APPROVED DRUG PRODUCT: TRICOR
Active Ingredient: FENOFIBRATE
Strength: 48MG **Federal Register determination that product was not discontinued or withdrawn for safety or effectiveness reasons**
Dosage Form/Route: TABLET;ORAL
Application: N021656 | Product #001
Applicant: ABBVIE INC
Approved: Nov 5, 2004 | RLD: Yes | RS: No | Type: DISCN